FAERS Safety Report 17567606 (Version 1)
Quarter: 2020Q1

REPORT INFORMATION
  Report Type: Spontaneous
  Country: CN (occurrence: CN)
  Receive Date: 20200320
  Receipt Date: 20200320
  Transmission Date: 20200409
  Serious: Yes (Other)
  Sender: FDA-Public Use
  Company Number: CN-ASTRAZENECA-2020SE39910

PATIENT
  Age: 29306 Day
  Sex: Female
  Weight: 60 kg

DRUGS (1)
  1. BRILINTA [Suspect]
     Active Substance: TICAGRELOR
     Indication: MYOCARDIAL INFARCTION
     Route: 048
     Dates: start: 20200208, end: 20200214

REACTIONS (5)
  - Ecchymosis [Recovering/Resolving]
  - Haemoglobin decreased [Recovering/Resolving]
  - Scleroderma [Unknown]
  - Petechiae [Unknown]
  - Subdural haematoma [Unknown]

NARRATIVE: CASE EVENT DATE: 202002
